FAERS Safety Report 5120080-8 (Version None)
Quarter: 2006Q3

REPORT INFORMATION
  Report Type: 
  Country: None (occurrence: None)
  Receive Date: 20060928
  Receipt Date: 20060915
  Transmission Date: 20061208
  Serious: Yes (Death, Life-Threatening)
  Sender: FDA-Public Use
  Company Number: 2006087261

PATIENT
  Age: 67 Year
  Sex: Female
  Weight: 39.9 kg

DRUGS (1)
  1. SULPERAZON (SULBACTAM, CEFOPERAZONE) [Suspect]
     Indication: PYREXIA
     Dosage: 1 GRAM (FREQUENCY : QD), INTRAVENOUS
     Route: 042
     Dates: start: 20060531

REACTIONS (6)
  - ANAPHYLACTIC SHOCK [None]
  - BRAIN OEDEMA [None]
  - ENCEPHALOPATHY [None]
  - HEART RATE DECREASED [None]
  - HEPATIC FAILURE [None]
  - PLEURAL EFFUSION [None]
